FAERS Safety Report 7028525-3 (Version None)
Quarter: 2010Q4

REPORT INFORMATION
  Report Type: 
  Country: None (occurrence: None)
  Receive Date: 20101005
  Receipt Date: 20100929
  Transmission Date: 20110411
  Serious: Yes (Hospitalization, Other)
  Sender: FDA-Public Use
  Company Number: DE-GENZYME-THYM-1001587

PATIENT
  Sex: Male
  Weight: 67.1 kg

DRUGS (15)
  1. THYMOGLOBULIN [Suspect]
     Indication: PROPHYLAXIS AGAINST TRANSPLANT REJECTION
     Dosage: 75 MG, QD
     Route: 042
     Dates: start: 20100522, end: 20100527
  2. TACROLIMUS [Concomitant]
     Indication: IMMUNOSUPPRESSION
     Dosage: 6 MG, QD
     Route: 048
     Dates: start: 20100522
  3. CELLCEPT [Concomitant]
     Indication: IMMUNOSUPPRESSION
     Dosage: 500 MG, BID
     Route: 048
     Dates: start: 20100522, end: 20100701
  4. CELLCEPT [Concomitant]
     Dosage: 100 MG, BID
     Route: 048
     Dates: start: 20100704, end: 20100704
  5. CELLCEPT [Concomitant]
     Dosage: 150 MG, BID
     Route: 048
     Dates: start: 20100705
  6. SOLU-DECORTIN-H [Concomitant]
     Indication: IMMUNOSUPPRESSION
     Dosage: 25 MG, QD
     Route: 048
     Dates: start: 20100522, end: 20100529
  7. ATACAND [Concomitant]
     Indication: PRODUCT USED FOR UNKNOWN INDICATION
     Dosage: 16 MG, QD
     Dates: start: 20080901
  8. PANTOPRAZOLE SODIUM [Concomitant]
     Indication: PRODUCT USED FOR UNKNOWN INDICATION
     Dosage: 40 MG, QD
     Dates: start: 20090101
  9. BISOPROLOL [Concomitant]
     Indication: PRODUCT USED FOR UNKNOWN INDICATION
     Dosage: 10 MG, QD
     Dates: start: 20100527
  10. DIGITOXIN [Concomitant]
     Indication: PRODUCT USED FOR UNKNOWN INDICATION
     Dosage: 0.07 MG, QID
     Dates: start: 20100528
  11. NEORECORMON [Concomitant]
     Indication: ANAEMIA
     Dosage: 5000 IU, QD
  12. ACETYLSALICYLIC ACID SRT [Concomitant]
     Indication: PRODUCT USED FOR UNKNOWN INDICATION
     Dosage: 100 MG, QD
     Dates: start: 20100601
  13. FLUVASTATIN [Concomitant]
     Indication: PRODUCT USED FOR UNKNOWN INDICATION
     Dosage: 80 MG, QD
     Dates: start: 20100523
  14. FURORESE [Concomitant]
     Indication: PRODUCT USED FOR UNKNOWN INDICATION
     Dosage: 40 MG, QD
  15. ISOTONIC SOLUTIONS [Concomitant]
     Indication: PRODUCT USED FOR UNKNOWN INDICATION

REACTIONS (7)
  - ASTHENIA [None]
  - CYTOMEGALOVIRUS INFECTION [None]
  - DIARRHOEA [None]
  - LEUKOPENIA [None]
  - PYREXIA [None]
  - URINE OUTPUT DECREASED [None]
  - WEIGHT DECREASED [None]
